FAERS Safety Report 5702336-0 (Version None)
Quarter: 2008Q2

REPORT INFORMATION
  Report Type: 
  Country: None (occurrence: None)
  Receive Date: 20080411
  Receipt Date: 20080402
  Transmission Date: 20081010
  Serious: Yes (Other)
  Sender: FDA-Public Use
  Company Number: US-WYE-H03442608

PATIENT
  Age: 37 Year
  Sex: Female
  Weight: 65.83 kg

DRUGS (4)
  1. VENLAFAXINE HYDROCHLORIDE [Suspect]
     Indication: DEPRESSION
     Route: 048
     Dates: start: 20031201, end: 20070323
  2. VENLAFAXINE HYDROCHLORIDE [Suspect]
     Route: 048
     Dates: start: 20070324, end: 20070328
  3. VENLAFAXINE HYDROCHLORIDE [Suspect]
     Route: 048
     Dates: start: 20070329, end: 20070402
  4. DIAZEPAM [Concomitant]
     Indication: SLEEP DISORDER
     Dosage: 5 MG, AS NEEDED

REACTIONS (9)
  - DEHYDRATION [None]
  - DIZZINESS [None]
  - DRUG EXPOSURE DURING PREGNANCY [None]
  - DRUG WITHDRAWAL SYNDROME [None]
  - HYPERHIDROSIS [None]
  - INSOMNIA [None]
  - INTRA-UTERINE DEATH [None]
  - NAUSEA [None]
  - PALPITATIONS [None]
